FAERS Safety Report 18506553 (Version 1)
Quarter: 2020Q4

REPORT INFORMATION
  Report Type: Spontaneous
  Country: US (occurrence: US)
  Receive Date: 20201113
  Receipt Date: 20201113
  Transmission Date: 20210114
  Serious: No
  Sender: FDA-Public Use
  Company Number: None

PATIENT
  Age: 54 Year
  Sex: Female
  Weight: 65.5 kg

DRUGS (9)
  1. PERTUZUMAB. [Concomitant]
     Active Substance: PERTUZUMAB
     Dates: start: 20201111
  2. ISONIAZID. [Concomitant]
     Active Substance: ISONIAZID
     Dates: start: 20201110
  3. TRASTUZUMAB-QYYP [Concomitant]
     Active Substance: TRASTUZUMAB-QYYP
     Dates: start: 20201111
  4. CARBOPLATIN. [Concomitant]
     Active Substance: CARBOPLATIN
     Dates: start: 20201111
  5. PYRIDOXINE [Concomitant]
     Active Substance: PYRIDOXINE
     Dates: start: 20201110
  6. DEXAMETHASONE. [Concomitant]
     Active Substance: DEXAMETHASONE
     Dates: start: 20201111
  7. DOCETAXEL. [Suspect]
     Active Substance: DOCETAXEL
     Indication: BREAST CANCER
     Dosage: ?          OTHER FREQUENCY:EVERY 21 DAYS;?
     Route: 042
     Dates: start: 20201111
  8. PALONOSETRON. [Concomitant]
     Active Substance: PALONOSETRON HYDROCHLORIDE
     Dates: start: 20201111
  9. APREPITANT. [Concomitant]
     Active Substance: APREPITANT
     Dates: start: 20201111

REACTIONS (4)
  - Dyspnoea [None]
  - Infusion related reaction [None]
  - Flushing [None]
  - Throat tightness [None]

NARRATIVE: CASE EVENT DATE: 20201111
